FAERS Safety Report 7765851-4 (Version None)
Quarter: 2011Q3

REPORT INFORMATION
  Report Type: 
  Country: None (occurrence: None)
  Receive Date: 20110921
  Receipt Date: 20110919
  Transmission Date: 20111222
  Serious: Yes (Hospitalization, Other)
  Sender: FDA-Public Use
  Company Number: CA-ABBOTT-11P-028-0706258-00

PATIENT
  Sex: Female
  Weight: 80.812 kg

DRUGS (11)
  1. OXYCODONE HCL [Concomitant]
     Indication: PAIN
     Dosage: 2 Q 6HOURS AS REQUIRED
     Route: 048
     Dates: start: 20101203
  2. SENOKOT [Concomitant]
     Indication: CONSTIPATION PROPHYLAXIS
     Dosage: AS REQUIRED
     Route: 048
     Dates: start: 20101201
  3. CELEBREX [Concomitant]
     Indication: ARTHRALGIA
     Route: 048
     Dates: start: 20110802
  4. HUMIRA [Suspect]
     Indication: PSORIATIC ARTHROPATHY
     Route: 058
     Dates: start: 20101215
  5. PANTOPRAZOLE [Suspect]
     Indication: GASTRIC DISORDER
  6. DICLOFENAC SODIUM [Concomitant]
     Indication: ANTIINFLAMMATORY THERAPY
     Route: 048
     Dates: start: 20100901
  7. FOLIC ACID [Concomitant]
     Indication: VITAMIN SUPPLEMENTATION
     Route: 048
     Dates: start: 20100901
  8. LEFLUNOMIDE [Concomitant]
     Indication: ANTIINFLAMMATORY THERAPY
     Route: 048
     Dates: start: 20100901
  9. HYDROCHLOROTHIAZIDE [Concomitant]
     Indication: ARTHRITIS
     Route: 048
     Dates: start: 20090101
  10. TYLENOL W/ CODEINE NO. 3 [Concomitant]
     Indication: PAIN
     Route: 048
     Dates: start: 20101120
  11. DOCUSATE [Concomitant]
     Indication: CONSTIPATION PROPHYLAXIS
     Dosage: AS REQUIRED
     Route: 048
     Dates: start: 20100601

REACTIONS (5)
  - HEADACHE [None]
  - RASH PRURITIC [None]
  - FEELING HOT [None]
  - HYPERHIDROSIS [None]
  - OSTEOARTHRITIS [None]
